FAERS Safety Report 11424525 (Version 1)
Quarter: 2015Q3

REPORT INFORMATION
  Report Type: Spontaneous
  Country: CO (occurrence: CO)
  Receive Date: 20150827
  Receipt Date: 20150827
  Transmission Date: 20151125
  Serious: Yes (Hospitalization, Other)
  Sender: FDA-Public Use
  Company Number: CO-ELI_LILLY_AND_COMPANY-CO201508005620

PATIENT
  Age: 62 Year
  Sex: Male

DRUGS (3)
  1. OLANZAPINE. [Suspect]
     Active Substance: OLANZAPINE
     Indication: MANIA
     Dosage: 10 MG, QD
     Route: 048
     Dates: start: 20150809, end: 20150814
  2. CLONAZEPAM. [Concomitant]
     Active Substance: CLONAZEPAM
     Indication: BIPOLAR DISORDER
  3. MIDAZOLAM [Concomitant]
     Active Substance: MIDAZOLAM\MIDAZOLAM HYDROCHLORIDE
     Indication: BIPOLAR DISORDER

REACTIONS (6)
  - Food aversion [Unknown]
  - Hypophagia [Unknown]
  - Pneumonia aspiration [Recovering/Resolving]
  - Dehydration [Unknown]
  - Dry mouth [Unknown]
  - Wrong technique in product usage process [Unknown]
